FAERS Safety Report 8834482 (Version 1)
Quarter: 2012Q4

REPORT INFORMATION
  Report Type: Spontaneous
  Country: US (occurrence: None)
  Receive Date: 20121010
  Receipt Date: 20121010
  Transmission Date: 20130627
  Serious: No
  Sender: FDA-Public Use
  Company Number: None

PATIENT
  Age: 59 Year
  Sex: Female
  Weight: 72.58 kg

DRUGS (1)
  1. CVS CLEANSING EYELID WIPES CVS [Suspect]
     Dates: start: 20121007, end: 20121009

REACTIONS (2)
  - Eye irritation [None]
  - Product quality issue [None]
